FAERS Safety Report 13749504 (Version 3)
Quarter: 2017Q3

REPORT INFORMATION
  Report Type: Report from Study
  Country: US (occurrence: US)
  Receive Date: 20170713
  Receipt Date: 20170901
  Transmission Date: 20171127
  Serious: Yes (Other)
  Sender: FDA-Public Use
  Company Number: PHEH2017US020907

PATIENT
  Age: 19 Year
  Sex: Male

DRUGS (1)
  1. COSENTYX [Suspect]
     Active Substance: SECUKINUMAB
     Indication: PSORIASIS
     Dosage: 150 MG, QMO
     Route: 065
     Dates: start: 20160913

REACTIONS (4)
  - Psoriasis [Unknown]
  - Pruritus [Unknown]
  - Staphylococcal skin infection [Recovered/Resolved]
  - Scratch [Unknown]

NARRATIVE: CASE EVENT DATE: 20170328
